FAERS Safety Report 22922663 (Version 5)
Quarter: 2024Q1

REPORT INFORMATION
  Report Type: Spontaneous
  Country: US (occurrence: US)
  Receive Date: 20230908
  Receipt Date: 20240119
  Transmission Date: 20240410
  Serious: No
  Sender: FDA-Public Use
  Company Number: US-BRISTOL-MYERS SQUIBB COMPANY-2023-126961

PATIENT
  Age: 62 Year
  Sex: Male

DRUGS (1)
  1. REVLIMID [Suspect]
     Active Substance: LENALIDOMIDE
     Indication: Plasma cell myeloma
     Dosage: FREQUENCY: FOR 14 DAYS
     Route: 048

REACTIONS (7)
  - Fatigue [Unknown]
  - Peripheral swelling [Unknown]
  - Back pain [Unknown]
  - Off label use [Unknown]
  - Constipation [Unknown]
  - Blood iron decreased [Unknown]
  - Arthralgia [Unknown]
